FAERS Safety Report 17659483 (Version 2)
Quarter: 2020Q3

REPORT INFORMATION
  Report Type: Spontaneous
  Country: US (occurrence: US)
  Receive Date: 20200413
  Receipt Date: 20200731
  Transmission Date: 20201102
  Serious: No
  Sender: FDA-Public Use
  Company Number: US-AMGEN-USASP2020060337

PATIENT
  Sex: Female

DRUGS (19)
  1. ONE DAILY WOMEN^S [Concomitant]
     Dosage: UNK
  2. SERTRALINE HCL [Concomitant]
     Active Substance: SERTRALINE HYDROCHLORIDE
     Dosage: UNK
  3. SYMBICORT [Concomitant]
     Active Substance: BUDESONIDE\FORMOTEROL FUMARATE DIHYDRATE
     Dosage: UNK
  4. AMITRIPTYLINE HCL [Concomitant]
     Active Substance: AMITRIPTYLINE
     Dosage: UNK
  5. FLUTICASONE PROPIONATE. [Concomitant]
     Active Substance: FLUTICASONE PROPIONATE
     Dosage: UNK
  6. ENBREL [Suspect]
     Active Substance: ETANERCEPT
     Indication: RHEUMATOID ARTHRITIS
     Dosage: 50 MILLIGRAM, QWK
     Route: 058
  7. ALBUTEROL SULFATE HFA [Concomitant]
     Active Substance: ALBUTEROL SULFATE
     Dosage: UNK
  8. CELECOXIB. [Concomitant]
     Active Substance: CELECOXIB
     Dosage: UNK
  9. FERROUS SULFATE. [Concomitant]
     Active Substance: FERROUS SULFATE
     Dosage: UNK
  10. GABAPENTIN. [Concomitant]
     Active Substance: GABAPENTIN
     Dosage: UNK
  11. GAS RELIEF [Concomitant]
     Active Substance: DIMETHICONE
     Dosage: UNK
  12. AMLODIPINE BESYLATE. [Concomitant]
     Active Substance: AMLODIPINE BESYLATE
     Dosage: UNK
  13. CHANTIX [Concomitant]
     Active Substance: VARENICLINE TARTRATE
     Dosage: UNK
  14. HYDROXYZINE HCL [Concomitant]
     Active Substance: HYDROXYZINE HYDROCHLORIDE
     Dosage: UNK
  15. OMEPRAZOLE. [Concomitant]
     Active Substance: OMEPRAZOLE
     Dosage: UNK
  16. ENBREL [Suspect]
     Active Substance: ETANERCEPT
     Dosage: 50 MILLIGRAM, QWK
     Route: 058
  17. CYCLOBENZAPRINE HCL [Concomitant]
     Active Substance: CYCLOBENZAPRINE HYDROCHLORIDE
     Dosage: UNK
  18. SPIRIVA RESPIMAT [Concomitant]
     Active Substance: TIOTROPIUM BROMIDE
     Dosage: UNK
  19. TRAZODONE HYDROCHLORIDE. [Concomitant]
     Active Substance: TRAZODONE HYDROCHLORIDE
     Dosage: UNK

REACTIONS (8)
  - Grip strength decreased [Not Recovered/Not Resolved]
  - Injection site pain [Not Recovered/Not Resolved]
  - Muscle spasms [Not Recovered/Not Resolved]
  - Arthralgia [Not Recovered/Not Resolved]
  - Tongue discomfort [Unknown]
  - Initial insomnia [Recovered/Resolved]
  - Oral discomfort [Unknown]
  - Depression [Unknown]
